FAERS Safety Report 24424378 (Version 1)
Quarter: 2024Q4

REPORT INFORMATION
  Report Type: Spontaneous
  Country: CN (occurrence: CN)
  Receive Date: 20241010
  Receipt Date: 20241010
  Transmission Date: 20250115
  Serious: Yes (Life-Threatening, Hospitalization)
  Sender: PFIZER
  Company Number: CN-PFIZER INC-PV202400130760

PATIENT
  Age: 31 Year
  Sex: Female
  Weight: 56 kg

DRUGS (1)
  1. METHOTREXATE SODIUM [Suspect]
     Active Substance: METHOTREXATE SODIUM
     Indication: Ectopic pregnancy
     Dosage: 70 MG, 1X/DAY
     Route: 030
     Dates: start: 20240818, end: 20240818

REACTIONS (20)
  - Pyrexia [Recovering/Resolving]
  - Diarrhoea [Recovering/Resolving]
  - Nausea [Unknown]
  - Vomiting [Unknown]
  - Mouth haemorrhage [Unknown]
  - Epistaxis [Unknown]
  - Oral pain [Unknown]
  - Mouth ulceration [Unknown]
  - Myelosuppression [Recovering/Resolving]
  - Mouth injury [Unknown]
  - Blister [Unknown]
  - Rash [Recovering/Resolving]
  - Granulocyte count decreased [Recovering/Resolving]
  - Infection [Recovering/Resolving]
  - Platelet count decreased [Recovering/Resolving]
  - Anaemia [Recovering/Resolving]
  - Bone pain [Recovering/Resolving]
  - Tongue ulceration [Recovering/Resolving]
  - Pruritus [Recovering/Resolving]
  - Off label use [Unknown]

NARRATIVE: CASE EVENT DATE: 20240101
